FAERS Safety Report 6855691-2 (Version None)
Quarter: 2010Q3

REPORT INFORMATION
  Report Type: 
  Country: None (occurrence: None)
  Receive Date: 20100719
  Receipt Date: 20090814
  Transmission Date: 20110219
  Serious: No
  Sender: FDA-Public Use
  Company Number: US-KINGPHARMUSA00001-K200900988

PATIENT
  Sex: Female
  Weight: 69.841 kg

DRUGS (4)
  1. LEVOXYL [Suspect]
     Indication: THYROID DISORDER
     Dosage: 100 MCG, QD
     Route: 048
     Dates: start: 20090730, end: 20090807
  2. LEVOXYL [Suspect]
     Dosage: 100 MCG, QD
     Dates: start: 20090809, end: 20090809
  3. ZETIA [Concomitant]
     Indication: BLOOD CHOLESTEROL INCREASED
     Dosage: UNK
  4. PRAVACHOL [Concomitant]
     Indication: BLOOD CHOLESTEROL INCREASED
     Dosage: UNK

REACTIONS (6)
  - ASTHMA [None]
  - HYPERSENSITIVITY [None]
  - PRODUCTIVE COUGH [None]
  - SCRATCH [None]
  - URTICARIA [None]
  - WHEEZING [None]
